FAERS Safety Report 7094442-6 (Version None)
Quarter: 2010Q4

REPORT INFORMATION
  Report Type: 
  Country: None (occurrence: None)
  Receive Date: 20101110
  Receipt Date: 20101104
  Transmission Date: 20110411
  Serious: Yes (Death)
  Sender: FDA-Public Use
  Company Number: SI-CELGENEUS-261-50794-10110792

PATIENT
  Sex: Male

DRUGS (1)
  1. VIDAZA [Suspect]
     Route: 065
     Dates: start: 20100617, end: 20100623

REACTIONS (2)
  - CARDIAC FAILURE [None]
  - DISEASE PROGRESSION [None]
